FAERS Safety Report 9200208 (Version 1)
Quarter: 2013Q1

REPORT INFORMATION
  Report Type: Report from Study
  Country: US (occurrence: US)
  Receive Date: 20130329
  Receipt Date: 20130329
  Transmission Date: 20140127
  Serious: Yes (Death, Hospitalization)
  Sender: FDA-Public Use
  Company Number: US-JNJFOC-20130214950

PATIENT
  Age: 67 Year
  Sex: Female
  Weight: 94 kg

DRUGS (14)
  1. DOXORUBICIN HYDROCHLORIDE (CAELYX) [Suspect]
     Indication: OVARIAN CANCER
     Route: 042
     Dates: start: 20100118
  2. EC145 [Suspect]
     Indication: OVARIAN CANCER
     Route: 042
     Dates: start: 20100118
  3. EC20 [Suspect]
     Indication: SINGLE PHOTON EMISSION COMPUTERISED TOMOGRAM
     Dosage: 30 MILLICURIE (MCI)
     Route: 042
     Dates: start: 20100105, end: 20100105
  4. LEVEMIR [Concomitant]
     Route: 065
  5. CARTIA [Concomitant]
     Route: 065
  6. METOPROLOL [Concomitant]
     Route: 065
  7. STARLIX [Concomitant]
     Route: 065
  8. POTASSIUM [Concomitant]
     Route: 065
  9. BENICAR [Concomitant]
     Route: 065
  10. AMIODARONE [Concomitant]
     Route: 065
  11. COUMADIN [Concomitant]
     Route: 065
  12. ZOCOR [Concomitant]
     Route: 065
  13. LEVOTHYROXINE SODIUM [Concomitant]
     Route: 065
  14. AMBIEN [Concomitant]
     Route: 065

REACTIONS (6)
  - Nausea [Recovered/Resolved]
  - Vomiting [Recovered/Resolved]
  - Abdominal pain lower [Recovered/Resolved]
  - Sepsis [None]
  - Intestinal perforation [None]
  - Thrombosis [None]
